FAERS Safety Report 10813626 (Version 1)
Quarter: 2015Q1

REPORT INFORMATION
  Report Type: Spontaneous
  Country: GB (occurrence: GB)
  Receive Date: 20150218
  Receipt Date: 20150218
  Transmission Date: 20150721
  Serious: Yes (Other)
  Sender: FDA-Public Use
  Company Number: GB-CIPLA LTD.-2015GB01231

PATIENT
  Sex: Female

DRUGS (14)
  1. GEMCITABINE [Suspect]
     Active Substance: GEMCITABINE\GEMCITABINE HYDROCHLORIDE
     Indication: VIRAL LOAD
  2. ZIDOVUDINE. [Suspect]
     Active Substance: ZIDOVUDINE
     Indication: VIRAL LOAD
     Dosage: UNK, 3 CYCLES
  3. ANTI-CD25 [Suspect]
     Active Substance: MOGAMULIZUMAB
     Indication: VIRAL LOAD
  4. ZIDOVUDINE. [Suspect]
     Active Substance: ZIDOVUDINE
     Indication: ADULT T-CELL LYMPHOMA/LEUKAEMIA
  5. ANTI-CD25 [Suspect]
     Active Substance: MOGAMULIZUMAB
     Indication: ADULT T-CELL LYMPHOMA/LEUKAEMIA
     Dosage: UNK, 3 CYCLES
  6. BORTEZOMIB [Suspect]
     Active Substance: BORTEZOMIB
     Indication: ADULT T-CELL LYMPHOMA/LEUKAEMIA
     Dosage: UNK, 3 CYCLES
  7. BORTEZOMIB [Suspect]
     Active Substance: BORTEZOMIB
     Indication: VIRAL LOAD
  8. INTERFERON-A [Suspect]
     Active Substance: INTERFERON
     Indication: ADULT T-CELL LYMPHOMA/LEUKAEMIA
     Dosage: UNK, 3 CYCLES
  9. OXALOPLATIN [Suspect]
     Active Substance: OXALIPLATIN
     Indication: VIRAL LOAD
  10. ETOPOSIDE. [Suspect]
     Active Substance: ETOPOSIDE
     Indication: VIRAL LOAD
  11. GEMCITABINE [Suspect]
     Active Substance: GEMCITABINE\GEMCITABINE HYDROCHLORIDE
     Indication: ADULT T-CELL LYMPHOMA/LEUKAEMIA
     Dosage: UNK, 3 CYCLES
  12. ETOPOSIDE. [Suspect]
     Active Substance: ETOPOSIDE
     Indication: ADULT T-CELL LYMPHOMA/LEUKAEMIA
     Dosage: UNK, 3 CYCLES
  13. INTERFERON-A [Suspect]
     Active Substance: INTERFERON
     Indication: VIRAL LOAD
  14. OXALOPLATIN [Suspect]
     Active Substance: OXALIPLATIN
     Indication: ADULT T-CELL LYMPHOMA/LEUKAEMIA
     Dosage: UNK, 3 CYCLES

REACTIONS (1)
  - Toxicity to various agents [Recovered/Resolved]
